FAERS Safety Report 14621859 (Version 4)
Quarter: 2018Q2

REPORT INFORMATION
  Report Type: Spontaneous
  Country: GB (occurrence: GB)
  Receive Date: 20180310
  Receipt Date: 20180509
  Transmission Date: 20180711
  Serious: Yes (Disabling, Congenital Anomaly)
  Sender: FDA-Public Use
  Company Number: GB-ABBVIE-18P-167-2280210-00

PATIENT
  Sex: Male

DRUGS (1)
  1. VALPROATE SODIUM. [Suspect]
     Active Substance: VALPROATE SODIUM
     Indication: MATERNAL EXPOSURE TIMING UNSPECIFIED
     Route: 064

REACTIONS (12)
  - Eye disorder [Unknown]
  - Developmental delay [Unknown]
  - Dysmorphism [Unknown]
  - Sleep disorder [Unknown]
  - Autism spectrum disorder [Unknown]
  - Low set ears [Unknown]
  - Sensory processing disorder [Unknown]
  - Aggression [Unknown]
  - Intentional self-injury [Unknown]
  - Intestinal obstruction [Unknown]
  - Intelligence test abnormal [Unknown]
  - Foetal exposure during pregnancy [Unknown]

NARRATIVE: CASE EVENT DATE: 20110202
